FAERS Safety Report 9669328 (Version 1)
Quarter: 2013Q4

REPORT INFORMATION
  Report Type: Spontaneous
  Country: US (occurrence: US)
  Receive Date: 20131105
  Receipt Date: 20131105
  Transmission Date: 20140711
  Serious: Yes (Other)
  Sender: FDA-Public Use
  Company Number: US-DRREDDYS-USA/USA/13/0035299

PATIENT
  Age: 17 Year
  Sex: Male

DRUGS (1)
  1. ZENATANE [Suspect]
     Indication: ACNE
     Route: 048
     Dates: start: 20130816, end: 20130916

REACTIONS (7)
  - Mood swings [Recovering/Resolving]
  - Agitation [Unknown]
  - Anxiety [Unknown]
  - Lip dry [Unknown]
  - Nasal dryness [Unknown]
  - Dry mouth [Unknown]
  - Skin exfoliation [Recovered/Resolved]
